FAERS Safety Report 17670799 (Version 1)
Quarter: 2020Q2

REPORT INFORMATION
  Report Type: Spontaneous
  Country: US (occurrence: US)
  Receive Date: 20200415
  Receipt Date: 20200415
  Transmission Date: 20200713
  Serious: No
  Sender: FDA-Public Use
  Company Number: None

PATIENT
  Age: 28 Year
  Sex: Female
  Weight: 63.5 kg

DRUGS (1)
  1. COPPER IUD [Suspect]
     Active Substance: COPPER

REACTIONS (3)
  - Abdominal pain [None]
  - Menstrual disorder [None]
  - Pain [None]
